FAERS Safety Report 4815883-0 (Version None)
Quarter: 2005Q4

REPORT INFORMATION
  Report Type: 
  Country: None (occurrence: None)
  Receive Date: 20051031
  Receipt Date: 20051020
  Transmission Date: 20060501
  Serious: Yes (Life-Threatening, Hospitalization)
  Sender: FDA-Public Use
  Company Number: US-JNJFOC-20051005022

PATIENT
  Sex: Female

DRUGS (6)
  1. CONCERTA [Suspect]
     Indication: ATTENTION DEFICIT/HYPERACTIVITY DISORDER
     Dosage: PATIENT TAKING CONCERTA FOR ^SEVERAL YEARS^
     Route: 048
  2. ZEMURON [Concomitant]
  3. PROZAC [Concomitant]
  4. OGEN [Concomitant]
  5. SINGULAIR [Concomitant]
  6. SYNTHROID [Concomitant]

REACTIONS (1)
  - AORTIC ANEURYSM [None]
